FAERS Safety Report 9700676 (Version 1)
Quarter: 2013Q4

REPORT INFORMATION
  Report Type: Spontaneous
  Country: US (occurrence: None)
  Receive Date: 20131120
  Receipt Date: 20131120
  Transmission Date: 20140711
  Serious: Yes (Hospitalization)
  Sender: FDA-Public Use
  Company Number: None

PATIENT
  Age: 32 Year
  Sex: Female

DRUGS (2)
  1. TRAMADOL [Suspect]
     Indication: PAIN
     Dosage: 1 OR 2 TABLES QD ORAL
     Route: 048
     Dates: start: 20131108, end: 20131115
  2. PAXIL [Concomitant]

REACTIONS (2)
  - Convulsion [None]
  - Amnesia [None]
